FAERS Safety Report 17230818 (Version 1)
Quarter: 2020Q1

REPORT INFORMATION
  Report Type: Spontaneous
  Country: ES (occurrence: ES)
  Receive Date: 20200103
  Receipt Date: 20200103
  Transmission Date: 20200409
  Serious: Yes (Hospitalization)
  Sender: FDA-Public Use
  Company Number: ES-MYLANLABS-2019M1132388

PATIENT
  Age: 19 Year
  Sex: Female

DRUGS (6)
  1. MIRTAZAPINA [Concomitant]
     Active Substance: MIRTAZAPINE
     Indication: DEPRESSION
     Dosage: 30MG || DOSIS UNIDAD FRECUENCIA: 30 MG-MILIGRAMOS || DOSIS POR TOMA: 30 MG-MILIGRAMOS
     Route: 048
     Dates: start: 20140403
  2. ESOMEPRAZOL                        /01479301/ [Concomitant]
     Active Substance: ESOMEPRAZOLE
     Indication: PROPHYLAXIS AGAINST GASTROINTESTINAL ULCER
     Dosage: 1 CP || DOSIS UNIDAD FRECUENCIA: 20 MG-MILIGRAMOS || DOSIS POR TOMA: 20 MG-MILIGRAMOS
     Route: 048
     Dates: start: 20140405
  3. ACETILSALICILATO DE LISINA [Concomitant]
     Indication: THROMBOSIS PROPHYLAXIS
     Dosage: 225 MG || DOSIS UNIDAD FRECUENCIA: 225 MG-MILIGRAMOS || UNIDAD DE FRECUENCIA: 1 D?A
     Route: 042
     Dates: start: 20140328
  4. PROPOFOL. [Suspect]
     Active Substance: PROPOFOL
     Indication: SEDATION
     Dosage: C
     Route: 041
     Dates: start: 20140327, end: 20140403
  5. REMIFENTANIL [Suspect]
     Active Substance: REMIFENTANIL
     Indication: SEDATION
     Dosage: 5 MG EN PC || DOSIS UNIDAD FRECUENCIA: 5 MG-MILIGRAMOS || UNIDAD DE FRECUENCIA: 0 D?A
     Route: 041
     Dates: start: 20140331, end: 20140404
  6. AMOXICILLIN/CLAVULANIC ACID [Suspect]
     Active Substance: AMOXICILLIN\CLAVULANIC ACID
     Indication: POST PROCEDURAL INFECTION
     Dosage: 1GR/8H || DOSIS UNIDAD FRECUENCIA: 3 G-GRAMOS || DOSIS POR TOMA: 1 G-GRAMOS ||
     Route: 042
     Dates: start: 20140327, end: 20140408

REACTIONS (1)
  - Hepatitis acute [Recovered/Resolved]

NARRATIVE: CASE EVENT DATE: 20140408
